FAERS Safety Report 6887878-7 (Version None)
Quarter: 2010Q3

REPORT INFORMATION
  Report Type: 
  Country: None (occurrence: None)
  Receive Date: 20100730
  Receipt Date: 20100721
  Transmission Date: 20110219
  Serious: Yes (Other)
  Sender: FDA-Public Use
  Company Number: JP-SANOFI-AVENTIS-2010SA044189

PATIENT
  Age: 62 Year
  Sex: Female

DRUGS (6)
  1. ELPLAT [Suspect]
     Indication: COLON CANCER
     Dates: start: 20100618, end: 20100618
  2. ELPLAT [Suspect]
     Dates: start: 20100721, end: 20100721
  3. XELODA [Concomitant]
     Indication: COLON CANCER
     Route: 048
     Dates: start: 20100618
  4. AVASTIN [Concomitant]
     Indication: COLON CANCER
     Dates: start: 20100618, end: 20100721
  5. DEXAMETHASONE SODIUM PHOSPHATE [Concomitant]
     Indication: PREMEDICATION
     Dates: start: 20100618, end: 20100721
  6. GRANISETRON HYDROCHLORIDE [Concomitant]
     Indication: PREMEDICATION
     Dates: start: 20100618, end: 20100721

REACTIONS (1)
  - SHOCK [None]
